FAERS Safety Report 19736868 (Version 5)
Quarter: 2025Q1

REPORT INFORMATION
  Report Type: Report from Study
  Country: CA (occurrence: CA)
  Receive Date: 20210823
  Receipt Date: 20250224
  Transmission Date: 20250409
  Serious: Yes (Death, Hospitalization, Other)
  Sender: PFIZER
  Company Number: CA-PFIZER INC-202101022383

PATIENT
  Age: 34 Year
  Sex: Female

DRUGS (51)
  1. VORICONAZOLE [Suspect]
     Active Substance: VORICONAZOLE
     Indication: Lung disorder
     Dosage: 200 MG, 2X/DAY
     Route: 065
  2. VORICONAZOLE [Suspect]
     Active Substance: VORICONAZOLE
     Indication: Aspergillus infection
     Dosage: 400 MG, 1X/DAY
     Route: 065
     Dates: start: 20171107
  3. OMALIZUMAB [Suspect]
     Active Substance: OMALIZUMAB
     Indication: Lung disorder
     Route: 058
     Dates: start: 2021
  4. OMALIZUMAB [Suspect]
     Active Substance: OMALIZUMAB
     Indication: Asthma
     Route: 058
  5. OMALIZUMAB [Suspect]
     Active Substance: OMALIZUMAB
     Route: 058
  6. OMALIZUMAB [Suspect]
     Active Substance: OMALIZUMAB
     Route: 058
     Dates: start: 20180413
  7. OMALIZUMAB [Suspect]
     Active Substance: OMALIZUMAB
     Route: 058
  8. OMALIZUMAB [Suspect]
     Active Substance: OMALIZUMAB
     Route: 058
  9. OMALIZUMAB [Suspect]
     Active Substance: OMALIZUMAB
     Route: 058
     Dates: start: 20180830
  10. OMALIZUMAB [Suspect]
     Active Substance: OMALIZUMAB
     Route: 058
  11. OMALIZUMAB [Suspect]
     Active Substance: OMALIZUMAB
     Route: 058
  12. OMALIZUMAB [Suspect]
     Active Substance: OMALIZUMAB
     Route: 058
  13. OMALIZUMAB [Suspect]
     Active Substance: OMALIZUMAB
     Route: 058
  14. OMALIZUMAB [Suspect]
     Active Substance: OMALIZUMAB
     Route: 058
  15. OMALIZUMAB [Suspect]
     Active Substance: OMALIZUMAB
     Route: 058
  16. OMALIZUMAB [Suspect]
     Active Substance: OMALIZUMAB
     Route: 065
  17. OMALIZUMAB [Suspect]
     Active Substance: OMALIZUMAB
     Route: 065
  18. OMALIZUMAB [Suspect]
     Active Substance: OMALIZUMAB
     Dosage: 300 MG, MONTHLY
     Route: 058
     Dates: start: 20180803
  19. OMALIZUMAB [Suspect]
     Active Substance: OMALIZUMAB
     Dosage: 300 MG, MONTHLY
     Route: 058
     Dates: start: 20180918
  20. OMALIZUMAB [Suspect]
     Active Substance: OMALIZUMAB
     Route: 065
  21. OMALIZUMAB [Suspect]
     Active Substance: OMALIZUMAB
     Route: 065
  22. OMALIZUMAB [Suspect]
     Active Substance: OMALIZUMAB
     Dates: start: 20181107
  23. OMALIZUMAB [Suspect]
     Active Substance: OMALIZUMAB
     Dosage: 300 MG, WEEKLY
     Dates: start: 20190405
  24. OMALIZUMAB [Suspect]
     Active Substance: OMALIZUMAB
     Dates: start: 20190503
  25. OMALIZUMAB [Suspect]
     Active Substance: OMALIZUMAB
     Dates: start: 20190725
  26. OMALIZUMAB [Suspect]
     Active Substance: OMALIZUMAB
     Route: 058
     Dates: start: 20190826
  27. OMALIZUMAB [Suspect]
     Active Substance: OMALIZUMAB
     Route: 058
     Dates: start: 20200115
  28. OMALIZUMAB [Suspect]
     Active Substance: OMALIZUMAB
     Route: 058
     Dates: start: 20200218
  29. OMALIZUMAB [Suspect]
     Active Substance: OMALIZUMAB
     Indication: Lung disorder
     Route: 058
  30. OMALIZUMAB [Suspect]
     Active Substance: OMALIZUMAB
     Indication: Asthma
  31. BUDESONIDE\FORMOTEROL FUMARATE [Concomitant]
     Active Substance: BUDESONIDE\FORMOTEROL FUMARATE
     Indication: Asthma
     Dosage: 3 DF, 2X/DAY
     Route: 055
  32. BUDESONIDE\FORMOTEROL FUMARATE [Concomitant]
     Active Substance: BUDESONIDE\FORMOTEROL FUMARATE
     Dosage: 3 DF, 2X/DAY
     Route: 055
     Dates: start: 2009, end: 2019
  33. BUDESONIDE\FORMOTEROL FUMARATE [Concomitant]
     Active Substance: BUDESONIDE\FORMOTEROL FUMARATE
     Dosage: 3 DF, 2X/DAY
  34. BUDESONIDE\FORMOTEROL FUMARATE [Concomitant]
     Active Substance: BUDESONIDE\FORMOTEROL FUMARATE
     Dosage: 3 DF, 2X/DAY
     Route: 065
  35. BUDESONIDE\FORMOTEROL FUMARATE [Concomitant]
     Active Substance: BUDESONIDE\FORMOTEROL FUMARATE
     Dosage: 6 DF, 1X/DAY
     Route: 055
  36. OMEPRAZOLE [Concomitant]
     Active Substance: OMEPRAZOLE
     Indication: Gastrooesophageal reflux disease
     Dosage: 1 DF, 2X/DAY
     Route: 048
  37. OMEPRAZOLE [Concomitant]
     Active Substance: OMEPRAZOLE
     Route: 048
     Dates: start: 2007
  38. PULMICORT TURBUHALER [Concomitant]
     Active Substance: BUDESONIDE
     Indication: Asthma
     Dosage: 4 DF, 2X/DAY
     Route: 055
  39. PULMICORT TURBUHALER [Concomitant]
     Active Substance: BUDESONIDE
     Dosage: 4 DF, 2X/DAY
     Route: 055
     Dates: start: 2009, end: 2019
  40. PULMICORT TURBUHALER [Concomitant]
     Active Substance: BUDESONIDE
     Dosage: 4 DF, 2X/DAY
  41. PULMICORT TURBUHALER [Concomitant]
     Active Substance: BUDESONIDE
     Dosage: 4 DF, 1X/DAY
     Route: 065
  42. PULMICORT TURBUHALER [Concomitant]
     Active Substance: BUDESONIDE
     Dosage: 8 DF, 1X/DAY
     Route: 055
  43. URSODIOL [Concomitant]
     Active Substance: URSODIOL
     Indication: Hepatic cirrhosis
     Dosage: 1 DF, 2X/DAY
     Route: 048
  44. URSODIOL [Concomitant]
     Active Substance: URSODIOL
     Dosage: 2 DF, DAILY
     Dates: start: 2016
  45. VENTOLIN [Concomitant]
     Active Substance: ALBUTEROL SULFATE
     Indication: Asthma
     Dosage: 2 DF, 2X/DAY
     Route: 055
  46. VENTOLIN [Concomitant]
     Active Substance: ALBUTEROL SULFATE
     Route: 055
  47. VENTOLIN [Concomitant]
     Active Substance: ALBUTEROL SULFATE
  48. VENTOLIN [Concomitant]
     Active Substance: ALBUTEROL SULFATE
     Route: 055
  49. VENTOLIN [Concomitant]
     Active Substance: ALBUTEROL SULFATE
     Route: 065
  50. VENTOLIN [Concomitant]
     Active Substance: ALBUTEROL SULFATE
     Dosage: 4 DF, 2X/DAY
     Route: 055
  51. VENTOLIN [Concomitant]
     Active Substance: ALBUTEROL SULFATE
     Dosage: 8 DF, DAILY
     Dates: start: 1987, end: 2019

REACTIONS (24)
  - Multiple organ dysfunction syndrome [Fatal]
  - Pseudomonas test positive [Fatal]
  - Therapeutic product effect incomplete [Fatal]
  - Mass [Unknown]
  - Aspergillus infection [Unknown]
  - Pneumonia [Unknown]
  - Cystic fibrosis [Unknown]
  - Condition aggravated [Unknown]
  - Forced expiratory volume decreased [Unknown]
  - Mycobacterium abscessus infection [Recovering/Resolving]
  - Nephrolithiasis [Unknown]
  - Aphonia [Unknown]
  - Asthma [Unknown]
  - Bone pain [Unknown]
  - Cough [Not Recovered/Not Resolved]
  - Gastrointestinal polyp [Unknown]
  - Heart rate increased [Unknown]
  - Malaise [Unknown]
  - Pulmonary function test decreased [Unknown]
  - Vomiting [Not Recovered/Not Resolved]
  - Middle insomnia [Unknown]
  - Drug hypersensitivity [Unknown]
  - Product dose omission issue [Unknown]
  - Wrong technique in product usage process [Unknown]

NARRATIVE: CASE EVENT DATE: 20180213
